FAERS Safety Report 6030489-6 (Version None)
Quarter: 2008Q4

REPORT INFORMATION
  Report Type: 
  Country: None (occurrence: None)
  Receive Date: 20081222
  Receipt Date: 20080930
  Transmission Date: 20090506
  Serious: Yes (Other)
  Sender: FDA-Public Use
  Company Number: US-WYE-H06183308

PATIENT
  Age: 50 Year
  Sex: Female
  Weight: 99.88 kg

DRUGS (7)
  1. PRISTIQ [Suspect]
     Indication: DEPRESSION
     Dosage: 50 MG 1X PER 1 DAY,ORAL
     Route: 048
     Dates: start: 20080929
  2. SYNTHROID [Concomitant]
  3. ESTRACE [Concomitant]
  4. LOTENSIN [Concomitant]
  5. TEGRETOL [Concomitant]
  6. GLUCOPHAGE [Concomitant]
  7. GLUCOTROL [Concomitant]

REACTIONS (1)
  - NAUSEA [None]
